FAERS Safety Report 25622816 (Version 1)
Quarter: 2025Q3

REPORT INFORMATION
  Report Type: Spontaneous
  Country: US (occurrence: None)
  Receive Date: 20250730
  Receipt Date: 20250730
  Transmission Date: 20251020
  Serious: Yes (Other)
  Sender: FDA-CTU
  Company Number: None

PATIENT
  Age: 52 Year
  Sex: Female

DRUGS (7)
  1. AMANTADINE. [Suspect]
     Active Substance: AMANTADINE HYDROCHLORIDE
     Indication: COVID-19
     Dosage: FREQUENCY : TWICE A DAY;?
     Route: 048
     Dates: start: 20250607, end: 20250611
  2. Lisdexamfetamine 30mg PO QD [Concomitant]
     Dates: start: 20250608, end: 20250611
  3. Celexa 60mg daily [Concomitant]
     Dates: start: 20100524
  4. FISH OIL [Concomitant]
     Active Substance: FISH OIL
  5. VITAMIN E [Concomitant]
     Active Substance: .ALPHA.-TOCOPHEROL
  6. TEA LEAF [Concomitant]
     Active Substance: TEA LEAF
  7. EPA-DHA [Concomitant]

REACTIONS (11)
  - Depressed mood [None]
  - Depressed mood [None]
  - Confusional state [None]
  - Memory impairment [None]
  - Dizziness [None]
  - Restlessness [None]
  - Insomnia [None]
  - Vision blurred [None]
  - Tinnitus [None]
  - Headache [None]
  - Neuropsychological symptoms [None]

NARRATIVE: CASE EVENT DATE: 20250609
